FAERS Safety Report 14218639 (Version 3)
Quarter: 2018Q1

REPORT INFORMATION
  Report Type: Report from Study
  Country: GB (occurrence: GB)
  Receive Date: 20171123
  Receipt Date: 20180323
  Transmission Date: 20180508
  Serious: Yes (Hospitalization)
  Sender: FDA-Public Use
  Company Number: GB-ROCHE-2024949

PATIENT
  Age: 65 Year
  Sex: Female
  Weight: 71 kg

DRUGS (2)
  1. RO 6874281 (FAP IL2V MAB) [Suspect]
     Active Substance: RO-6874281
     Indication: NEOPLASM
     Dosage: DATE OF LAST DOSE PRIOR TO LOW BP AND HEMOGLOBIN: 06/NOV/2017?DATE OF LAST DOSE PRIOR TO INFUSION RE
     Route: 042
     Dates: start: 20171023
  2. TRASTUZUMAB. [Suspect]
     Active Substance: TRASTUZUMAB
     Indication: NEOPLASM
     Dosage: DATE OF LAST DOSE PRIOR TO LOW BP AND HEMOGLOBIN: 06/NOV/2017?DATE OF LAST DOSE PRIOR TO INFUSION RE
     Route: 042
     Dates: start: 20171023

REACTIONS (2)
  - Anaemia [Recovered/Resolved]
  - Infusion related reaction [Recovered/Resolved with Sequelae]

NARRATIVE: CASE EVENT DATE: 20171110
